FAERS Safety Report 23163182 (Version 1)
Quarter: 2023Q4

REPORT INFORMATION
  Report Type: Spontaneous
  Country: US (occurrence: US)
  Receive Date: 20231109
  Receipt Date: 20231109
  Transmission Date: 20240110
  Serious: No
  Sender: FDA-Public Use
  Company Number: US-INSMED, INC.-2023-00652-US

PATIENT
  Age: 55 Year
  Sex: Female

DRUGS (5)
  1. ARIKAYCE [Suspect]
     Active Substance: AMIKACIN
     Indication: Product used for unknown indication
     Route: 065
  2. AMIKIN [Suspect]
     Active Substance: AMIKACIN SULFATE
     Indication: Mycobacterium abscessus infection
     Dosage: 500 MILLIGRAM, ONE TIME DOSE
     Route: 042
     Dates: start: 20221220, end: 20221220
  3. AMIKIN [Suspect]
     Active Substance: AMIKACIN SULFATE
     Indication: Vascular graft infection
  4. AMIKIN [Suspect]
     Active Substance: AMIKACIN SULFATE
     Indication: Bacteraemia
  5. LINEZOLID [Suspect]
     Active Substance: LINEZOLID
     Indication: Mycobacterium abscessus infection
     Dosage: UNK
     Route: 065

REACTIONS (1)
  - Drug level below therapeutic [Unknown]

NARRATIVE: CASE EVENT DATE: 20221220
